FAERS Safety Report 24059161 (Version 9)
Quarter: 2024Q4

REPORT INFORMATION
  Report Type: Spontaneous
  Country: CA (occurrence: CA)
  Receive Date: 20240708
  Receipt Date: 20241115
  Transmission Date: 20250115
  Serious: Yes (Other)
  Sender: CELLTRION
  Company Number: CA-PFIZER INC-202400077653

PATIENT

DRUGS (11)
  1. INFLECTRA [Suspect]
     Active Substance: INFLIXIMAB-DYYB
     Indication: Crohn^s disease
     Dosage: 10 MG/KG, WEEKS 0, 2, 6, THEN EVERY 8 WEEKS
     Route: 042
     Dates: start: 20240316
  2. INFLECTRA [Suspect]
     Active Substance: INFLIXIMAB-DYYB
     Dosage: 740 MG, AFTER 2 WEEKS AND 2 DAYS
     Route: 042
     Dates: start: 20240401
  3. INFLECTRA [Suspect]
     Active Substance: INFLIXIMAB-DYYB
     Dosage: 770 MG, AFTER 4 WEEKS (WEEK 6 INDUCTION DOSE)
     Route: 042
     Dates: start: 20240429
  4. INFLECTRA [Suspect]
     Active Substance: INFLIXIMAB-DYYB
     Dosage: 770 MG, 2 WEEKS AND 2 DAYS (10MG/KG,RESCUE DOSE)
     Route: 042
     Dates: start: 20240515, end: 20240515
  5. INFLECTRA [Suspect]
     Active Substance: INFLIXIMAB-DYYB
     Dosage: 700 MG, AFTER 8 WEEKS AND 4 DAYS
     Route: 042
     Dates: start: 20240628
  6. INFLECTRA [Suspect]
     Active Substance: INFLIXIMAB-DYYB
     Dosage: 730 MG, 3 WEEKS AND 6 DAYS (10 MG/KG, EVERY 4 WEEKS)
     Route: 042
     Dates: start: 20240725
  7. INFLECTRA [Suspect]
     Active Substance: INFLIXIMAB-DYYB
     Dosage: 740 MG, 4 WEEKS (10 MG/KG, EVERY 4 WEEKS)
     Route: 042
     Dates: start: 20240821
  8. INFLECTRA [Suspect]
     Active Substance: INFLIXIMAB-DYYB
     Dosage: 10 MG/KG, EVERY 4 WEEKS
     Route: 042
     Dates: start: 20240919
  9. INFLECTRA [Suspect]
     Active Substance: INFLIXIMAB-DYYB
     Dosage: 740 MG, AFTER 3 WEEKS AND 5 DAYS, (10MG/KG, EVERY 4 WEEKS)
     Route: 042
     Dates: start: 20241015, end: 20241015
  10. PREDNISONE [Concomitant]
     Active Substance: PREDNISONE
     Dosage: 1 DF
     Dates: start: 20240318
  11. PREDNISONE [Concomitant]
     Active Substance: PREDNISONE
     Dosage: 5 MG

REACTIONS (12)
  - Condition aggravated [Recovering/Resolving]
  - Therapeutic response shortened [Unknown]
  - Anaemia [Unknown]
  - Alopecia [Unknown]
  - Fatigue [Unknown]
  - Dizziness postural [Unknown]
  - Influenza [Recovered/Resolved]
  - Bronchitis [Recovered/Resolved]
  - Arthralgia [Not Recovered/Not Resolved]
  - Off label use [Unknown]
  - Off label use [Unknown]
  - Inappropriate schedule of product administration [Unknown]

NARRATIVE: CASE EVENT DATE: 20240101
